FAERS Safety Report 8906918 (Version 2)
Quarter: 2013Q1

REPORT INFORMATION
  Report Type: Spontaneous
  Country: DE (occurrence: DE)
  Receive Date: 20121114
  Receipt Date: 20130206
  Transmission Date: 20140127
  Serious: Yes (Hospitalization)
  Sender: FDA-Public Use
  Company Number: DE-JNJFOC-20121105408

PATIENT
  Age: 90 Year
  Sex: Female
  Weight: 55 kg

DRUGS (6)
  1. XARELTO [Suspect]
     Indication: ATRIAL FIBRILLATION
     Route: 048
     Dates: start: 20120509
  2. XARELTO [Suspect]
     Indication: CEREBROVASCULAR ACCIDENT PROPHYLAXIS
     Route: 048
     Dates: start: 20120509
  3. L-THYROXIN [Concomitant]
     Indication: HYPOTHYROIDISM
     Route: 048
  4. SULPRID [Concomitant]
     Indication: DEMENTIA
     Route: 048
  5. ENALAPRIL [Concomitant]
     Indication: HYPERTENSION
     Route: 048
  6. BELOC ZOK [Concomitant]
     Indication: HYPERTENSION
     Route: 065

REACTIONS (1)
  - Thrombocytopenia [Recovering/Resolving]
